FAERS Safety Report 10315016 (Version 2)
Quarter: 2014Q3

REPORT INFORMATION
  Report Type: Spontaneous
  Country: FI (occurrence: FI)
  Receive Date: 20140718
  Receipt Date: 20140718
  Transmission Date: 20150326
  Serious: Yes (Hospitalization, Other)
  Sender: FDA-Public Use
  Company Number: PHHY2014FI073586

PATIENT
  Age: 67 Year
  Sex: Male

DRUGS (5)
  1. ONBREZ [Suspect]
     Active Substance: INDACATEROL
     Dosage: 150 UG, QD
     Route: 055
     Dates: start: 2012, end: 201405
  2. TRAMAL RETARD [Concomitant]
     Active Substance: TRAMADOL
     Dosage: 100 MG (ONE TO TWO TIMES DAILY)
     Route: 048
  3. ONBREZ [Suspect]
     Active Substance: INDACATEROL
     Indication: CHRONIC OBSTRUCTIVE PULMONARY DISEASE
     Dosage: UNK
     Route: 055
     Dates: start: 20110802
  4. ALPROX [Concomitant]
     Active Substance: ALPRAZOLAM
     Dosage: 1 MG (TWO TO THREE TIMES DAILY)
     Route: 048
  5. OMNIC OCAS [Concomitant]
     Active Substance: TAMSULOSIN HYDROCHLORIDE
     Dosage: 0.4 MG, QD
     Route: 048

REACTIONS (4)
  - Non-cardiac chest pain [Recovered/Resolved]
  - Wheezing [Recovered/Resolved]
  - Dyspnoea [Unknown]
  - Pyrexia [Recovered/Resolved]

NARRATIVE: CASE EVENT DATE: 2011
